FAERS Safety Report 12560262 (Version 1)
Quarter: 2016Q3

REPORT INFORMATION
  Report Type: Spontaneous
  Country: US (occurrence: US)
  Receive Date: 20160715
  Receipt Date: 20160715
  Transmission Date: 20161109
  Serious: No
  Sender: FDA-Public Use
  Company Number: US-JNJFOC-20160700350

PATIENT
  Age: 73 Year
  Sex: Female
  Weight: 47.63 kg

DRUGS (5)
  1. WOMENS ROGAINE [Suspect]
     Active Substance: MINOXIDIL
     Route: 061
  2. MUTI VITAMIN [Concomitant]
     Indication: NUTRITIONAL SUPPLEMENTATION
     Route: 065
  3. CALCIUM [Concomitant]
     Active Substance: CALCIUM
     Indication: NUTRITIONAL SUPPLEMENTATION
     Route: 065
  4. WOMENS ROGAINE [Suspect]
     Active Substance: MINOXIDIL
     Indication: ALOPECIA
     Route: 061
     Dates: start: 20160626
  5. VITAMIN D [Concomitant]
     Active Substance: CHOLECALCIFEROL
     Indication: NUTRITIONAL SUPPLEMENTATION
     Route: 065

REACTIONS (1)
  - Erythema [Unknown]

NARRATIVE: CASE EVENT DATE: 20160629
